FAERS Safety Report 8439099 (Version 2)
Quarter: 2013Q2

REPORT INFORMATION
  Report Type: Spontaneous
  Country: US (occurrence: None)
  Receive Date: 20120104
  Receipt Date: 20120508
  Transmission Date: 20140414
  Serious: Yes (Other)
  Sender: FDA-Public Use
  Company Number: 2011HGS-002912

PATIENT
  Age: 32 Year
  Sex: Female
  Weight: 119.75 kg

DRUGS (12)
  1. BENLYSTA [Suspect]
     Indication: SYSTEMIC LUPUS ERYTHEMATOSUS
     Route: 041
     Dates: start: 20111109
  2. PLAQUENIL (HYDROXYCHLOROQUINE SULFATE)(HYDROXYCHLOROQUINE SULFATE) [Concomitant]
  3. METHOTREXATE [Concomitant]
  4. COUMADIN [Concomitant]
  5. TRAMADOL HYDROCHLORIDE [Concomitant]
  6. LISINOPRIL [Concomitant]
  7. VICODIN(VICODIN)(PARACETAMOL, HYDROCODONE BITARTRATE) [Concomitant]
  8. PROTONIX [Concomitant]
  9. SKELAXIN(METAXALONE)(METAXALONE) [Concomitant]
  10. DEPLIN (CALCIUM LEVOMEFOLATE) (CALCIUM LEVOMEFOLATE) [Concomitant]
  11. LYRICA (PREGABALIN) (PREGABALIN) [Concomitant]
  12. SALAGEN (PILOCARPINE HYDROCHLORIDE) (PILOCARPINE HYDROCHLORIDE) [Concomitant]

REACTIONS (5)
  - HEADACHE [None]
  - DIZZINESS [None]
  - CONTUSION [None]
  - INFUSION SITE HAEMATOMA [None]
  - PRODUCTIVE COUGH [None]
